FAERS Safety Report 6852875-4 (Version None)
Quarter: 2010Q3

REPORT INFORMATION
  Report Type: 
  Country: None (occurrence: None)
  Receive Date: 20100717
  Receipt Date: 20071123
  Transmission Date: 20110219
  Serious: No
  Sender: FDA-Public Use
  Company Number: US-PFIZER INC-2007101183

PATIENT
  Sex: Female
  Weight: 61.363 kg

DRUGS (4)
  1. CHANTIX [Suspect]
     Indication: SMOKING CESSATION THERAPY
     Dates: start: 20071105
  2. LITHIUM [Concomitant]
  3. PRILOSEC [Concomitant]
     Indication: DYSPEPSIA
  4. ZOCOR [Concomitant]

REACTIONS (4)
  - INFLUENZA [None]
  - NAUSEA [None]
  - RASH [None]
  - SOMNOLENCE [None]
